FAERS Safety Report 11286016 (Version 1)
Quarter: 2015Q3

REPORT INFORMATION
  Report Type: Report from Study
  Country: CL (occurrence: CL)
  Receive Date: 20150721
  Receipt Date: 20150721
  Transmission Date: 20151125
  Serious: Yes (Other)
  Sender: FDA-Public Use
  Company Number: CL-ROCHE-1554554

PATIENT
  Age: 47 Year
  Sex: Female
  Weight: 66 kg

DRUGS (1)
  1. XELODA [Suspect]
     Active Substance: CAPECITABINE
     Indication: COLORECTAL CANCER
     Dosage: 14 DAYS PER CYCLE
     Route: 048
     Dates: start: 20150206

REACTIONS (31)
  - Sensory disturbance [Not Recovered/Not Resolved]
  - Abdominal pain upper [Not Recovered/Not Resolved]
  - Skin exfoliation [Unknown]
  - Drug dose omission [Unknown]
  - Pain [Not Recovered/Not Resolved]
  - Malaise [Recovered/Resolved]
  - Abdominal pain [Not Recovered/Not Resolved]
  - Weight increased [Not Recovered/Not Resolved]
  - Abnormal faeces [Not Recovered/Not Resolved]
  - Immune system disorder [Not Recovered/Not Resolved]
  - Pain [Not Recovered/Not Resolved]
  - Hypoaesthesia [Not Recovered/Not Resolved]
  - Palmar-plantar erythrodysaesthesia syndrome [Not Recovered/Not Resolved]
  - Vomiting [Recovered/Resolved]
  - Fatigue [Not Recovered/Not Resolved]
  - Skin discolouration [Not Recovered/Not Resolved]
  - Immune system disorder [Unknown]
  - Nausea [Recovered/Resolved]
  - Swelling [Not Recovered/Not Resolved]
  - Dry skin [Not Recovered/Not Resolved]
  - Asthenia [Not Recovered/Not Resolved]
  - Paraesthesia [Not Recovered/Not Resolved]
  - Burning sensation [Not Recovered/Not Resolved]
  - Pruritus [Not Recovered/Not Resolved]
  - Epistaxis [Recovered/Resolved]
  - Burning sensation [Not Recovered/Not Resolved]
  - Oropharyngeal pain [Not Recovered/Not Resolved]
  - Diarrhoea [Recovered/Resolved]
  - Insomnia [Not Recovered/Not Resolved]
  - Contusion [Recovered/Resolved]
  - Skin discolouration [Not Recovered/Not Resolved]

NARRATIVE: CASE EVENT DATE: 20150206
